FAERS Safety Report 8133607-9 (Version None)
Quarter: 2012Q1

REPORT INFORMATION
  Report Type: 
  Country: None (occurrence: None)
  Receive Date: 20120213
  Receipt Date: 20120206
  Transmission Date: 20120608
  Serious: Yes (Other)
  Sender: FDA-Public Use
  Company Number: CHPA2012US002226

PATIENT
  Age: 30 Year
  Sex: Female

DRUGS (3)
  1. EXCEDRIN (MIGRAINE) [Suspect]
     Dosage: 3 DF, QAM AND 2-4 DF THROUGHOUT DAY
     Route: 048
     Dates: start: 20080101
  2. MAXALT [Concomitant]
  3. EXCEDRIN (MIGRAINE) [Suspect]
     Indication: MIGRAINE
     Dosage: UNK, QW
     Route: 048
     Dates: start: 19990101, end: 20080101

REACTIONS (4)
  - PAIN [None]
  - OVERDOSE [None]
  - DRUG DEPENDENCE [None]
  - REBOUND EFFECT [None]
